FAERS Safety Report 4373283-4 (Version None)
Quarter: 2004Q2

REPORT INFORMATION
  Report Type: 
  Country: None (occurrence: None)
  Receive Date: 20040603
  Receipt Date: 20040524
  Transmission Date: 20050107
  Serious: Yes (Other)
  Sender: FDA-Public Use
  Company Number: S04-USA-02794-01

PATIENT
  Age: 29 Year
  Sex: Male
  Weight: 86.1834 kg

DRUGS (5)
  1. LEXAPRO [Suspect]
     Indication: ATTENTION DEFICIT/HYPERACTIVITY DISORDER
     Dosage: 20 MG QD PO
     Route: 048
     Dates: start: 20031107, end: 20040508
  2. LEXAPRO [Suspect]
     Indication: DEPRESSION
     Dosage: 20 MG QD PO
     Route: 048
     Dates: start: 20031107, end: 20040508
  3. LEXAPRO [Suspect]
     Indication: GENERALISED ANXIETY DISORDER
     Dosage: 20 MG QD PO
     Route: 048
     Dates: start: 20031107, end: 20040508
  4. STRATTERA [Suspect]
     Indication: ATTENTION DEFICIT/HYPERACTIVITY DISORDER
     Dosage: 60 MG QD
     Dates: start: 20040208, end: 20040314
  5. STRATTERA [Suspect]
     Indication: ATTENTION DEFICIT/HYPERACTIVITY DISORDER
     Dosage: 40 MG QD
     Dates: start: 20040204, end: 20040207

REACTIONS (5)
  - ABNORMAL BEHAVIOUR [None]
  - ALCOHOLISM [None]
  - ANXIETY [None]
  - DRUG INTERACTION [None]
  - ROAD TRAFFIC ACCIDENT [None]
